FAERS Safety Report 5801496-0 (Version None)
Quarter: 2008Q3

REPORT INFORMATION
  Report Type: 
  Country: None (occurrence: None)
  Receive Date: 20080703
  Receipt Date: 20080703
  Transmission Date: 20090109
  Serious: Yes (Hospitalization)
  Sender: FDA-Public Use
  Company Number: None

PATIENT
  Age: 32 Year
  Sex: Male
  Weight: 70 kg

DRUGS (1)
  1. PEGASYS [Suspect]
     Indication: HEPATITIS C

REACTIONS (2)
  - PRURITUS [None]
  - RASH GENERALISED [None]
